FAERS Safety Report 18585790 (Version 1)
Quarter: 2020Q4

REPORT INFORMATION
  Report Type: Spontaneous
  Country: US (occurrence: US)
  Receive Date: 20201206
  Receipt Date: 20201206
  Transmission Date: 20210114
  Serious: No
  Sender: FDA-Public Use
  Company Number: None

PATIENT
  Age: 56 Year
  Sex: Female
  Weight: 45 kg

DRUGS (5)
  1. TRI-LUMA [Suspect]
     Active Substance: FLUOCINOLONE ACETONIDE\HYDROQUINONE\TRETINOIN
     Indication: SKIN DISCOLOURATION
     Dosage: ?          QUANTITY:1 THIN AMOUNT;?
     Route: 061
     Dates: start: 20201109, end: 20201204
  2. VITAMIN D [Concomitant]
     Active Substance: VITAMIN D NOS
  3. VITAMIN B12 [Concomitant]
     Active Substance: CYANOCOBALAMIN
  4. OSCAR CALCIUM [Concomitant]
  5. VITAMIN E [Concomitant]
     Active Substance: .ALPHA.-TOCOPHEROL

REACTIONS (4)
  - Application site pain [None]
  - Application site erythema [None]
  - Application site dryness [None]
  - Application site exfoliation [None]

NARRATIVE: CASE EVENT DATE: 20201109
